FAERS Safety Report 19131661 (Version 2)
Quarter: 2022Q1

REPORT INFORMATION
  Report Type: Spontaneous
  Country: CH (occurrence: CH)
  Receive Date: 20210414
  Receipt Date: 20220114
  Transmission Date: 20220423
  Serious: Yes (Hospitalization, Other)
  Sender: FDA-Public Use
  Company Number: CH-IPCA LABORATORIES LIMITED-IPC-2021-CH-000854

PATIENT

DRUGS (1)
  1. CHLOROQUINE [Suspect]
     Active Substance: CHLOROQUINE
     Indication: Product used for unknown indication
     Dosage: 3 GRAM, SINGLE
     Route: 048

REACTIONS (16)
  - Suicide attempt [Unknown]
  - Intentional overdose [Unknown]
  - Toxicity to various agents [Recovering/Resolving]
  - Cardiac arrest [Recovering/Resolving]
  - Bradypnoea [Recovering/Resolving]
  - Trismus [Recovering/Resolving]
  - Ventricular tachycardia [Recovering/Resolving]
  - Hypokalaemia [Recovering/Resolving]
  - Metabolic acidosis [Recovering/Resolving]
  - Ventricular dysfunction [Recovering/Resolving]
  - Compartment syndrome [Recovering/Resolving]
  - Peripheral artery stenosis [Recovering/Resolving]
  - Encephalopathy [Recovering/Resolving]
  - Cardiotoxicity [Recovering/Resolving]
  - Respiratory depression [Recovering/Resolving]
  - Circulatory collapse [Recovering/Resolving]
